FAERS Safety Report 10640734 (Version 1)
Quarter: 2014Q4

REPORT INFORMATION
  Report Type: Spontaneous
  Country: US (occurrence: None)
  Receive Date: 20141208
  Receipt Date: 20141208
  Transmission Date: 20150529
  Serious: Yes (Disabling)
  Sender: FDA-Public Use
  Company Number: None

PATIENT
  Age: 61 Year
  Sex: Female
  Weight: 79.38 kg

DRUGS (1)
  1. CONTRAVE [Suspect]
     Active Substance: BUPROPION HYDROCHLORIDE\NALTREXONE HYDROCHLORIDE
     Indication: WEIGHT DECREASED
     Dosage: 1 TABLET
     Route: 048
     Dates: start: 20141111, end: 20141111

REACTIONS (9)
  - Dizziness [None]
  - Chest pain [None]
  - Nausea [None]
  - Headache [None]
  - Dyspepsia [None]
  - Arthralgia [None]
  - Hyperhidrosis [None]
  - Palpitations [None]
  - Chills [None]

NARRATIVE: CASE EVENT DATE: 20141110
